FAERS Safety Report 9733380 (Version 1)
Quarter: 2013Q4

REPORT INFORMATION
  Report Type: Spontaneous
  Country: US (occurrence: None)
  Receive Date: 20131204
  Receipt Date: 20131204
  Transmission Date: 20140711
  Serious: Yes (Other)
  Sender: FDA-Public Use
  Company Number: None

PATIENT
  Age: 73 Year
  Sex: Female

DRUGS (3)
  1. REVLIMID 10MG CELGENE [Suspect]
  2. VELCADE [Concomitant]
  3. DECADRON [Concomitant]

REACTIONS (3)
  - Diarrhoea [None]
  - Rash [None]
  - Drug intolerance [None]
